FAERS Safety Report 5825270-4 (Version None)
Quarter: 2008Q3

REPORT INFORMATION
  Report Type: 
  Country: None (occurrence: None)
  Receive Date: 20080722
  Receipt Date: 20070905
  Transmission Date: 20090109
  Serious: Yes (Hospitalization)
  Sender: FDA-Public Use
  Company Number: 2007BI018755

PATIENT
  Age: 58 Year
  Sex: Female
  Weight: 83.9154 kg

DRUGS (1)
  1. AVONEX [Suspect]
     Indication: MULTIPLE SCLEROSIS
     Dosage: 30 UG;QW;IM
     Route: 030
     Dates: start: 20040101

REACTIONS (5)
  - GLAUCOMA [None]
  - HYPERTONIC BLADDER [None]
  - OEDEMA PERIPHERAL [None]
  - PHARYNGITIS [None]
  - VIRAL INFECTION [None]
